FAERS Safety Report 19095682 (Version 2)
Quarter: 2021Q2

REPORT INFORMATION
  Report Type: Spontaneous
  Country: GR (occurrence: GR)
  Receive Date: 20210406
  Receipt Date: 20210429
  Transmission Date: 20210717
  Serious: Yes (Other)
  Sender: FDA-Public Use
  Company Number: GR-JNJFOC-20210356263

PATIENT
  Age: 45 Year
  Sex: Female

DRUGS (1)
  1. REMICADE [Suspect]
     Active Substance: INFLIXIMAB
     Indication: COLITIS ULCERATIVE
     Dosage: TOTALLY 13 INFUSIONS DURING A PERIOD OF 13 MONTHS
     Route: 042

REACTIONS (3)
  - Off label use [Unknown]
  - Suicidal ideation [Recovering/Resolving]
  - Cognitive disorder [Not Recovered/Not Resolved]
